FAERS Safety Report 14678329 (Version 2)
Quarter: 2018Q1

REPORT INFORMATION
  Report Type: Report from Study
  Country: DE (occurrence: DE)
  Receive Date: 20180326
  Receipt Date: 20180330
  Transmission Date: 20180509
  Serious: Yes (Hospitalization)
  Sender: FDA-Public Use
  Company Number: DE-ROCHE-2001905

PATIENT
  Age: 60 Year
  Sex: Female
  Weight: 75 kg

DRUGS (3)
  1. VENETOCLAX. [Suspect]
     Active Substance: VENETOCLAX
     Indication: CHRONIC LYMPHOCYTIC LEUKAEMIA
     Dosage: DATE OF LAST DOSE (420 MG, DAILY DOSE) ADMINISTERED PRIOR TO SAE: 27/SEP/2017
     Route: 048
     Dates: start: 20161128
  2. OBINUTUZUMAB. [Suspect]
     Active Substance: OBINUTUZUMAB
     Indication: CHRONIC LYMPHOCYTIC LEUKAEMIA
     Dosage: DATE OF LAST DOSE (1000 MG, DAILY DOSE) ADMINISTERED PRIOR TO SAE: 28/MAR/2017
     Route: 042
     Dates: start: 20161103
  3. IBRUTINIB [Suspect]
     Active Substance: IBRUTINIB
     Indication: CHRONIC LYMPHOCYTIC LEUKAEMIA
     Dosage: DATE OF LAST DOSE (400 MG, DAILY DOSE) ADMINISTERED PRIOR TO SAE: 28/MAR/2017
     Route: 048
     Dates: start: 20161103

REACTIONS (2)
  - Adenoma benign [Unknown]
  - Salpingo-oophorectomy [Recovered/Resolved]

NARRATIVE: CASE EVENT DATE: 20170927
